FAERS Safety Report 4871152-4 (Version None)
Quarter: 2005Q4

REPORT INFORMATION
  Report Type: 
  Country: None (occurrence: None)
  Receive Date: 20051229
  Receipt Date: 20051223
  Transmission Date: 20060501
  Serious: Yes (Hospitalization)
  Sender: FDA-Public Use
  Company Number: 2005-12-1286

PATIENT
  Age: 71 Year
  Sex: Male
  Weight: 83 kg

DRUGS (11)
  1. NEOCLARITYN (DESLORATADINE) TABLETS [Suspect]
     Indication: MULTIPLE ALLERGIES
     Dosage: 5 MG ORAL
     Route: 048
     Dates: start: 20051102, end: 20051204
  2. DILTIAZEM HCL [Concomitant]
  3. SIMVASTATIN [Concomitant]
  4. CALCIUM/VITAMIN D [Concomitant]
  5. OMEPRAZOLE [Concomitant]
  6. DICLOFENAC [Concomitant]
  7. RISEDRONATE SODIUM [Concomitant]
  8. VENTOLIN [Concomitant]
  9. FLIXOTIDE [Concomitant]
  10. ASPIRIN [Concomitant]
  11. ATORVASTATIN CALCIUM [Concomitant]

REACTIONS (4)
  - CONFUSIONAL STATE [None]
  - EXTRAPYRAMIDAL DISORDER [None]
  - PHOTOPHOBIA [None]
  - RESTLESSNESS [None]
